FAERS Safety Report 14843166 (Version 1)
Quarter: 2018Q2

REPORT INFORMATION
  Report Type: Spontaneous
  Country: IT (occurrence: IT)
  Receive Date: 20180503
  Receipt Date: 20180503
  Transmission Date: 20180711
  Serious: Yes (Other)
  Sender: FDA-Public Use
  Company Number: IT-ABBVIE-18P-083-2340329-00

PATIENT
  Age: 65 Year
  Sex: Male

DRUGS (5)
  1. ELOPRAM (CITALOPRAM HYDROBROMIDE) [Suspect]
     Active Substance: CITALOPRAM HYDROBROMIDE
     Indication: DEPRESSION
     Route: 048
  2. LORAZEPAM. [Suspect]
     Active Substance: LORAZEPAM
     Indication: DEPRESSION
     Route: 065
     Dates: start: 201409
  3. VALPROIC ACID. [Suspect]
     Active Substance: VALPROIC ACID
     Indication: DEPRESSION
     Dosage: EXTENDED RELEASE
     Route: 048
     Dates: start: 201409
  4. ELOPRAM (CITALOPRAM HYDROBROMIDE) [Suspect]
     Active Substance: CITALOPRAM HYDROBROMIDE
     Route: 042
     Dates: start: 201409
  5. SILODOSIN [Interacting]
     Active Substance: SILODOSIN
     Indication: BENIGN PROSTATIC HYPERPLASIA
     Route: 065
     Dates: start: 2014

REACTIONS (3)
  - Pruritus [Recovered/Resolved]
  - Purpura [Recovered/Resolved]
  - Drug interaction [Unknown]

NARRATIVE: CASE EVENT DATE: 2014
